FAERS Safety Report 7713264-3 (Version None)
Quarter: 2011Q3

REPORT INFORMATION
  Report Type: 
  Country: None (occurrence: None)
  Receive Date: 20110826
  Receipt Date: 20110823
  Transmission Date: 20111222
  Serious: Yes (Death, Hospitalization)
  Sender: FDA-Public Use
  Company Number: KR-BAYER-2011-014615

PATIENT
  Age: 53 Year
  Sex: Male
  Weight: 59 kg

DRUGS (59)
  1. MEK INHIBITOR (DIHYDROXYPROP-DIFLU-METHOXYPHEN-CYCLOPROPA-SULFAMI) [Suspect]
     Dosage: 50 MG, BID
     Route: 048
     Dates: start: 20110208, end: 20110211
  2. MEK INHIBITOR (DIHYDROXYPROP-DIFLU-METHOXYPHEN-CYCLOPROPA-SULFAMI) [Suspect]
     Dosage: 30 MG, BID
     Route: 048
     Dates: start: 20110315, end: 20110320
  3. MEK INHIBITOR (DIHYDROXYPROP-DIFLU-METHOXYPHEN-CYCLOPROPA-SULFAMI) [Suspect]
     Dosage: 30 MG, QD
     Route: 048
     Dates: start: 20110428, end: 20110428
  4. MEK INHIBITOR (DIHYDROXYPROP-DIFLU-METHOXYPHEN-CYCLOPROPA-SULFAMI) [Suspect]
     Dosage: 30 MG, BID
     Route: 048
     Dates: start: 20110615, end: 20110705
  5. SORAFENIB (RAF KINASE INHIBITOR) [Suspect]
     Dosage: 600 MG, QD
     Route: 048
     Dates: start: 20110208, end: 20110211
  6. SORAFENIB (RAF KINASE INHIBITOR) [Suspect]
     Dosage: 400 MG, QD
     Route: 048
     Dates: start: 20110228, end: 20110306
  7. SORAFENIB (RAF KINASE INHIBITOR) [Suspect]
     Dosage: 400 MG, QOD
     Route: 048
     Dates: start: 20110526, end: 20110613
  8. SORAFENIB (RAF KINASE INHIBITOR) [Suspect]
     Dosage: 400 MG, QOD
     Route: 048
     Dates: start: 20110706, end: 20110724
  9. ADELAVIN [Concomitant]
     Dosage: 2 ML, QD
     Route: 042
     Dates: start: 20110430, end: 20110504
  10. CEFTRIAXONE [Concomitant]
     Indication: PYREXIA
     Dosage: 2 G, QD
     Route: 042
     Dates: start: 20110214, end: 20110219
  11. PHENIRAMINE [Concomitant]
     Dosage: 1440 ML, UNK
     Dates: start: 20110216, end: 20110217
  12. KABIVEN [Concomitant]
     Indication: MEDICAL DIET
     Dosage: 1440 ML, QD
     Route: 042
     Dates: start: 20110216, end: 20110217
  13. ULTRAVIST 150 [Concomitant]
     Dosage: 100 ML, QD
     Route: 042
     Dates: start: 20110314, end: 20110314
  14. MEK INHIBITOR (DIHYDROXYPROP-DIFLU-METHOXYPHEN-CYCLOPROPA-SULFAMI) [Suspect]
     Dosage: 50 MG, QD
     Route: 048
     Dates: start: 20110212, end: 20110212
  15. MEK INHIBITOR (DIHYDROXYPROP-DIFLU-METHOXYPHEN-CYCLOPROPA-SULFAMI) [Suspect]
     Dosage: 30 MG, QD
     Route: 048
     Dates: start: 20110221, end: 20110227
  16. MEK INHIBITOR (DIHYDROXYPROP-DIFLU-METHOXYPHEN-CYCLOPROPA-SULFAMI) [Suspect]
     Dosage: 30 MG, BID
     Route: 048
     Dates: start: 20110321, end: 20110414
  17. MEK INHIBITOR (DIHYDROXYPROP-DIFLU-METHOXYPHEN-CYCLOPROPA-SULFAMI) [Suspect]
     Dosage: 30 MG, BID
     Route: 048
     Dates: start: 20110525, end: 20110614
  18. SORAFENIB (RAF KINASE INHIBITOR) [Suspect]
     Indication: HEPATIC NEOPLASM MALIGNANT
     Dosage: 400 MG, QD
     Route: 048
     Dates: start: 20110207, end: 20110207
  19. SORAFENIB (RAF KINASE INHIBITOR) [Suspect]
     Dosage: 400 MG, QD
     Route: 048
     Dates: start: 20110212, end: 20110212
  20. SORAFENIB (RAF KINASE INHIBITOR) [Suspect]
     Dosage: 400 MG, QOD
     Route: 048
     Dates: start: 20110615, end: 20110706
  21. NEURONTIN [Concomitant]
     Dosage: 300 MG, TID
     Route: 048
     Dates: start: 20110217, end: 20110428
  22. PHENIRAMINE [Concomitant]
     Dosage: 4 MG, QD
     Route: 042
     Dates: start: 20110429, end: 20110430
  23. K40NS500 [Concomitant]
     Indication: MEDICAL DIET
     Dosage: 500 ML, QD
     Route: 042
     Dates: start: 20110216, end: 20110217
  24. MEK INHIBITOR (DIHYDROXYPROP-DIFLU-METHOXYPHEN-CYCLOPROPA-SULFAMI) [Suspect]
     Dosage: 30 MG, BID
     Dates: start: 20110228, end: 20110306
  25. MEK INHIBITOR (DIHYDROXYPROP-DIFLU-METHOXYPHEN-CYCLOPROPA-SULFAMI) [Suspect]
     Dosage: 30 MG, QD
     Route: 048
     Dates: start: 20110307, end: 20110307
  26. SORAFENIB (RAF KINASE INHIBITOR) [Suspect]
     Dosage: 400 MG, QD
     Route: 048
     Dates: start: 20110321, end: 20110414
  27. ADALAT [Concomitant]
     Indication: HYPERTENSION
     Dosage: 60 MG, QD
     Route: 048
     Dates: start: 20100605, end: 20110428
  28. LANSOPRAZOLE [Concomitant]
     Indication: GASTROOESOPHAGEAL REFLUX DISEASE
     Dosage: 30 MG, QD
     Route: 048
     Dates: start: 20100714, end: 20110213
  29. PHENIRAMINE [Concomitant]
     Dosage: 150000 U, UNK
     Dates: start: 20110215, end: 20110220
  30. PHENIRAMINE [Concomitant]
     Dosage: 1000 MG, UNK
     Route: 042
     Dates: start: 20110216, end: 20110216
  31. MEK INHIBITOR (DIHYDROXYPROP-DIFLU-METHOXYPHEN-CYCLOPROPA-SULFAMI) [Suspect]
     Dosage: 30 MG, BID
     Route: 048
     Dates: start: 20110415, end: 20110427
  32. MEK INHIBITOR (DIHYDROXYPROP-DIFLU-METHOXYPHEN-CYCLOPROPA-SULFAMI) [Suspect]
     Dosage: 30 MG, BID
     Route: 048
     Dates: start: 20110510, end: 20110525
  33. CARVEDILOL [Concomitant]
     Dosage: 25 MG, QD
     Route: 048
     Dates: start: 20110415, end: 20110428
  34. NEURONTIN [Concomitant]
     Indication: PERIPHERAL SENSORY NEUROPATHY
     Dosage: 300 MG, TID
     Route: 048
     Dates: start: 20101115, end: 20110213
  35. LOPERAMIDE HCL [Concomitant]
     Indication: DIARRHOEA
     Dosage: 2 MG, PRN
     Route: 048
     Dates: start: 20110207, end: 20110210
  36. PHENIRAMINE [Concomitant]
     Dosage: UNK
     Route: 048
     Dates: start: 20110217
  37. LASIX [Concomitant]
     Dosage: 20 MG, QD
     Route: 042
     Dates: start: 20110216, end: 20110216
  38. PHENIRAMINE [Concomitant]
     Indication: PREMEDICATION
     Dosage: 4 MG, QD
     Route: 042
     Dates: start: 20110215, end: 20110215
  39. CLINIMIX 2.75/10 SULFITE FREE IN DEXTROSE 10% [Concomitant]
     Indication: MEDICAL DIET
     Dosage: 1500 ML, QD
     Route: 042
     Dates: start: 20110214, end: 20110216
  40. CLINIMIX 2.75/10 SULFITE FREE IN DEXTROSE 10% [Concomitant]
     Dosage: 1500 ML, QD
     Route: 042
     Dates: start: 20110429, end: 20110430
  41. MEK INHIBITOR (DIHYDROXYPROP-DIFLU-METHOXYPHEN-CYCLOPROPA-SULFAMI) [Suspect]
     Dosage: 30 MG, QD
     Route: 048
     Dates: start: 20110509, end: 20110509
  42. SORAFENIB (RAF KINASE INHIBITOR) [Suspect]
     Dosage: 400 MG, QD
     Route: 048
     Dates: start: 20110415, end: 20110427
  43. CARVEDILOL [Concomitant]
     Indication: HYPERTENSION
     Dosage: 25 MG, QD
     Route: 048
     Dates: start: 20100606, end: 20110213
  44. CELEBREX [Concomitant]
     Indication: PERIPHERAL SENSORY NEUROPATHY
     Dosage: 200 MG, BID
     Route: 048
     Dates: start: 20101229, end: 20110226
  45. ADELAVIN [Concomitant]
     Indication: SUPPLEMENTATION THERAPY
     Dosage: 2 ML, QD
     Route: 042
     Dates: start: 20110214, end: 20110216
  46. ACETYLCYSTEINE [Concomitant]
     Dosage: 600 MG, BID
     Route: 042
     Dates: start: 20110214, end: 20110216
  47. PHENIRAMINE [Concomitant]
     Dosage: 4 MG, QD
     Route: 042
     Dates: start: 20110216, end: 20110216
  48. MEK INHIBITOR (DIHYDROXYPROP-DIFLU-METHOXYPHEN-CYCLOPROPA-SULFAMI) [Suspect]
     Indication: HEPATIC NEOPLASM MALIGNANT
     Dosage: 50 MG, QD
     Route: 048
     Dates: start: 20110207, end: 20110207
  49. MEK INHIBITOR (DIHYDROXYPROP-DIFLU-METHOXYPHEN-CYCLOPROPA-SULFAMI) [Suspect]
     Dosage: 30 MG, QD
     Route: 048
     Dates: start: 20110314, end: 20110314
  50. MEK INHIBITOR (DIHYDROXYPROP-DIFLU-METHOXYPHEN-CYCLOPROPA-SULFAMI) [Suspect]
     Dosage: 30 MG, BID
     Route: 048
     Dates: start: 20110706, end: 20110724
  51. SORAFENIB (RAF KINASE INHIBITOR) [Suspect]
     Dosage: 400 MG, QD
     Dates: start: 20110221, end: 20110227
  52. SORAFENIB (RAF KINASE INHIBITOR) [Suspect]
     Dosage: 400 MG, QD
     Dates: start: 20110314, end: 20110320
  53. CARVEDILOL [Concomitant]
     Dosage: 25 MG, QD
     Route: 048
     Dates: start: 20110502
  54. LANSOPRAZOLE [Concomitant]
     Dosage: 15 ML, QD
     Route: 048
     Dates: start: 20110217, end: 20110428
  55. LASIX [Concomitant]
     Indication: PREMEDICATION
     Dosage: 20 MG, QD
     Route: 042
     Dates: start: 20110215, end: 20110215
  56. ULTRAVIST 150 [Concomitant]
     Indication: COMPUTERISED TOMOGRAM
     Dosage: 100 ML, QD
     Route: 042
     Dates: start: 20110201, end: 20110201
  57. NICARDIPINE HCL [Suspect]
     Indication: HYPERTENSION
     Dosage: 20 MG, QD
     Route: 042
     Dates: start: 20110429, end: 20110503
  58. MEK INHIBITOR (DIHYDROXYPROP-DIFLU-METHOXYPHEN-CYCLOPROPA-SULFAMI) [Suspect]
     Dosage: 30 MG, QD
     Route: 048
     Dates: start: 20110725, end: 20110725
  59. SORAFENIB (RAF KINASE INHIBITOR) [Suspect]
     Dosage: 400 MG, QOD
     Route: 048
     Dates: start: 20110510, end: 20110525

REACTIONS (2)
  - UPPER GASTROINTESTINAL HAEMORRHAGE [None]
  - DUODENAL ULCER [None]
